FAERS Safety Report 13011152 (Version 2)
Quarter: 2016Q4

REPORT INFORMATION
  Report Type: Report from Study
  Country: US (occurrence: US)
  Receive Date: 20161208
  Receipt Date: 20161221
  Transmission Date: 20170207
  Serious: Yes (Death)
  Sender: FDA-Public Use
  Company Number: US-ASTRAZENECA-2016SF28986

PATIENT
  Age: 63 Year
  Sex: Male
  Weight: 75.8 kg

DRUGS (15)
  1. OLAPARIB [Suspect]
     Active Substance: OLAPARIB
     Indication: SMALL CELL LUNG CANCER
     Route: 048
     Dates: start: 20161123, end: 20161129
  2. ASPIRIN. [Concomitant]
     Active Substance: ASPIRIN
     Dates: start: 20120510
  3. BISACODYL. [Concomitant]
     Active Substance: BISACODYL
     Dates: start: 20160913
  4. ATORVASTATIN [Concomitant]
     Active Substance: ATORVASTATIN
     Dates: start: 20160913
  5. DUONEB [Concomitant]
     Active Substance: ALBUTEROL SULFATE\IPRATROPIUM BROMIDE
     Dates: start: 20161202
  6. MS CONTIN [Concomitant]
     Active Substance: MORPHINE SULFATE
     Route: 065
     Dates: start: 20161116
  7. OXYCODONE [Concomitant]
     Active Substance: OXYCODONE
     Route: 065
     Dates: start: 20161130
  8. OMEPRAZOLE. [Concomitant]
     Active Substance: OMEPRAZOLE
     Route: 065
     Dates: start: 20161130
  9. PROCHLORPERAZINE. [Concomitant]
     Active Substance: PROCHLORPERAZINE
     Route: 065
     Dates: start: 20160909
  10. TEMOZOLOMIDE. [Suspect]
     Active Substance: TEMOZOLOMIDE
     Indication: SMALL CELL LUNG CANCER
     Route: 048
     Dates: start: 20161123, end: 20161129
  11. LIDOCAINE. [Concomitant]
     Active Substance: LIDOCAINE
     Route: 065
     Dates: start: 20161202
  12. METOPROLOL SUCCINATE. [Concomitant]
     Active Substance: METOPROLOL SUCCINATE
     Route: 065
     Dates: start: 20161116
  13. ALBUTEROL. [Concomitant]
     Active Substance: ALBUTEROL
     Dates: start: 20161130
  14. ADVAIR DISKUS [Concomitant]
     Active Substance: FLUTICASONE PROPIONATE\SALMETEROL XINAFOATE
     Dates: start: 20161130
  15. LORAZEPAM. [Concomitant]
     Active Substance: LORAZEPAM
     Route: 065
     Dates: start: 20160909

REACTIONS (3)
  - Neutropenia [Fatal]
  - Thrombocytopenia [Fatal]
  - Pneumonia [Fatal]

NARRATIVE: CASE EVENT DATE: 20161203
